FAERS Safety Report 9788542 (Version 2)
Quarter: 2013Q4

REPORT INFORMATION
  Report Type: Spontaneous
  Country: GB (occurrence: GB)
  Receive Date: 20131230
  Receipt Date: 20131230
  Transmission Date: 20140711
  Serious: Yes (Disabling)
  Sender: FDA-Public Use
  Company Number: GB-GE HEALTHCARE MEDICAL DIAGNOSTICS-OSCN-PR-0905S-0280

PATIENT
  Age: 58 Year
  Sex: Male

DRUGS (18)
  1. OMNISCAN [Suspect]
     Indication: PRODUCT USED FOR UNKNOWN INDICATION
     Route: 042
     Dates: start: 20021106, end: 20021106
  2. OMNISCAN [Suspect]
     Indication: RENAL FAILURE CHRONIC
     Route: 042
     Dates: start: 20021212, end: 20021212
  3. OMNISCAN [Suspect]
     Indication: TRANSPLANT EVALUATION
  4. EPREX [Concomitant]
  5. LISINOPRIL [Concomitant]
  6. FUROSEMIDE [Concomitant]
  7. ASPIRIN [Concomitant]
  8. ATORVASTATIN [Concomitant]
  9. CALCIUM ACETATE [Concomitant]
  10. NIFEDIPINE [Concomitant]
  11. ZOTON [Concomitant]
  12. CHLORPHENIRAMINE [Concomitant]
  13. VENOFER [Concomitant]
  14. TACROLIMUS [Concomitant]
  15. MYCLOPHENOLATE MOFETIL [Concomitant]
  16. SIROLIMUS [Concomitant]
  17. COTRIMOXAZOLE [Concomitant]
  18. PREDNISOLONE [Concomitant]

REACTIONS (1)
  - Nephrogenic systemic fibrosis [Not Recovered/Not Resolved]
